FAERS Safety Report 5357306-1 (Version None)
Quarter: 2007Q2

REPORT INFORMATION
  Report Type: 
  Country: None (occurrence: None)
  Receive Date: 20070612
  Receipt Date: 20070612
  Transmission Date: 20071010
  Serious: Yes (Life-Threatening, Hospitalization)
  Sender: FDA-Public Use
  Company Number: None

PATIENT
  Age: 85 Year
  Sex: Female
  Weight: 66.3159 kg

DRUGS (5)
  1. PHENAZOPYRIDINE 200 MG PT SELF REPORT-MFR UNKNOWN [Suspect]
     Indication: URINARY TRACT INFECTION
     Dosage: 200 MG QID PO
     Route: 048
  2. ENALAPRIL MALEATE [Concomitant]
  3. ATORVASTATIN CALCIUM [Concomitant]
  4. ETODOLAC [Concomitant]
  5. HYDROCHLOROTHIAZIDE [Concomitant]

REACTIONS (5)
  - HAEMOLYTIC ANAEMIA [None]
  - NEPHRITIS INTERSTITIAL [None]
  - RENAL FAILURE ACUTE [None]
  - SCLERAL DISCOLOURATION [None]
  - SKIN DISCOLOURATION [None]
